FAERS Safety Report 13668977 (Version 3)
Quarter: 2018Q4

REPORT INFORMATION
  Report Type: Spontaneous
  Country: BR (occurrence: BR)
  Receive Date: 20170620
  Receipt Date: 20181008
  Transmission Date: 20190204
  Serious: Yes (Other)
  Sender: FDA-Public Use
  Company Number: BR-PFIZER INC-2017262481

PATIENT
  Sex: Female

DRUGS (1)
  1. AROMASIN [Suspect]
     Active Substance: EXEMESTANE
     Indication: NEOPLASM MALIGNANT
     Dosage: 50 MG, TAKEN 40 MINUTES AFTER BREAKFAST
     Dates: start: 2013

REACTIONS (4)
  - Bone pain [Unknown]
  - Cardiac aneurysm [Unknown]
  - Somnolence [Unknown]
  - Incorrect dose administered [Unknown]
